FAERS Safety Report 10213804 (Version 2)
Quarter: 2014Q2

REPORT INFORMATION
  Report Type: Spontaneous
  Country: IT (occurrence: None)
  Receive Date: 20140530
  Receipt Date: 20140624
  Transmission Date: 20141212
  Serious: Yes (Other)
  Sender: FDA-Public Use
  Company Number: 2358067

PATIENT
  Age: 50 Year
  Sex: Female

DRUGS (2)
  1. (DOCETAXEL) [Suspect]
     Indication: BREAST CANCER
     Dosage: 105 MG MILLIGRAM, TOTAL, INTRAVENOUS (NOT OTHERWISE SPECIFIED)?
     Route: 042
     Dates: start: 20140428, end: 20140428
  2. (SALINE/ 00075401/) [Concomitant]

REACTIONS (4)
  - Vertigo [None]
  - Hyperhidrosis [None]
  - Chest discomfort [None]
  - Chest discomfort [None]
